FAERS Safety Report 19644861 (Version 1)
Quarter: 2021Q3

REPORT INFORMATION
  Report Type: Spontaneous
  Country: BR (occurrence: BR)
  Receive Date: 20210802
  Receipt Date: 20210802
  Transmission Date: 20211014
  Serious: Yes (Hospitalization)
  Sender: FDA-Public Use
  Company Number: BR-SA-2020SA355132

PATIENT
  Age: 27 Year
  Sex: Female
  Weight: 67 kg

DRUGS (1)
  1. CLEXANE [Suspect]
     Active Substance: ENOXAPARIN SODIUM
     Indication: HYPERCOAGULATION
     Dosage: 40 MG, QD
     Route: 058

REACTIONS (6)
  - Platelet count decreased [Unknown]
  - Product use in unapproved indication [Unknown]
  - COVID-19 [Unknown]
  - Hypovitaminosis [Unknown]
  - Anaemia of pregnancy [Unknown]
  - Maternal exposure during pregnancy [Unknown]

NARRATIVE: CASE EVENT DATE: 202011
